FAERS Safety Report 20657595 (Version 1)
Quarter: 2022Q1

REPORT INFORMATION
  Report Type: Spontaneous
  Country: US (occurrence: US)
  Receive Date: 20220331
  Receipt Date: 20220331
  Transmission Date: 20220423
  Serious: No
  Sender: FDA-Public Use
  Company Number: US-SA-SAC20220328000730

PATIENT
  Sex: Male

DRUGS (4)
  1. DUPIXENT [Suspect]
     Active Substance: DUPILUMAB
     Indication: Dermatitis atopic
     Dosage: 300 MG, QOW
     Route: 058
     Dates: start: 202110
  2. TRIAMCINOLONE [Concomitant]
     Active Substance: TRIAMCINOLONE
  3. EUCRISA [Concomitant]
     Active Substance: CRISABOROLE
  4. MORNIFLUMATE [Concomitant]
     Active Substance: MORNIFLUMATE

REACTIONS (5)
  - Pruritus [Unknown]
  - Peripheral swelling [Unknown]
  - Sleep disorder [Unknown]
  - Fatigue [Unknown]
  - Therapeutic response decreased [Unknown]
